FAERS Safety Report 7626470-3 (Version None)
Quarter: 2011Q3

REPORT INFORMATION
  Report Type: 
  Country: None (occurrence: None)
  Receive Date: 20110721
  Receipt Date: 20110707
  Transmission Date: 20111222
  Serious: Yes (Death, Life-Threatening, Hospitalization, Other)
  Sender: FDA-Public Use
  Company Number: JP-ROCHE-770197

PATIENT
  Sex: Female
  Weight: 47 kg

DRUGS (6)
  1. XELODA [Suspect]
     Indication: COLON CANCER RECURRENT
     Route: 048
     Dates: start: 20110217, end: 20110228
  2. LEUCOVORIN CALCIUM [Suspect]
     Indication: COLON CANCER RECURRENT
     Dosage: DRUG NAME: LEVOFOLINATE CALCIUM(LEVOFOLINATE CALCIUM), NOTE: DOSAGE IS UNCERTAIN.
     Route: 041
     Dates: start: 20100301, end: 20101206
  3. FLUOROURACIL [Suspect]
     Indication: COLON CANCER RECURRENT
     Dosage: ROUTE: INTRAVENOUS BOLUS, NOTE: DOSAGE IS UNCERTAIN
     Route: 042
     Dates: start: 20100301, end: 20101206
  4. AVASTIN [Suspect]
     Indication: COLON CANCER RECURRENT
     Dosage: NOTE: DOSAGE IS UNCERTAIN.
     Route: 041
     Dates: start: 20100301, end: 20101206
  5. OXALIPLATIN [Suspect]
     Indication: COLON CANCER RECURRENT
     Dosage: NOTE: DOSAGE IS UNCERTAIN.
     Route: 041
     Dates: start: 20100301, end: 20101206
  6. FLUOROURACIL [Suspect]
     Dosage: ROUTE: INTRAVENOUS DRIP, NOTE: DOSAGE IS UNCERTAIN.
     Route: 042
     Dates: start: 20100301, end: 20101201

REACTIONS (14)
  - HISTIOCYTOSIS HAEMATOPHAGIC [None]
  - EPISTAXIS [None]
  - STOMATITIS [None]
  - SEPSIS [None]
  - MULTI-ORGAN FAILURE [None]
  - MALAISE [None]
  - FEBRILE NEUTROPENIA [None]
  - DECREASED APPETITE [None]
  - LOWER GASTROINTESTINAL HAEMORRHAGE [None]
  - DIARRHOEA [None]
  - NEUTROPHIL COUNT DECREASED [None]
  - PANCYTOPENIA [None]
  - OBSTRUCTIVE AIRWAYS DISORDER [None]
  - CARDIO-RESPIRATORY ARREST [None]
